FAERS Safety Report 7113446-8 (Version None)
Quarter: 2010Q4

REPORT INFORMATION
  Report Type: 
  Country: None (occurrence: None)
  Receive Date: 20101119
  Receipt Date: 20101109
  Transmission Date: 20110411
  Serious: Yes (Other)
  Sender: FDA-Public Use
  Company Number: CA-JNJFOC-20100307620

PATIENT
  Sex: Male
  Weight: 76 kg

DRUGS (4)
  1. REMICADE [Suspect]
     Indication: CROHN'S DISEASE
     Dosage: 5TH INFUSION
     Route: 042
  2. REMICADE [Suspect]
     Route: 042
  3. PENTASA [Concomitant]
  4. IRON [Concomitant]

REACTIONS (4)
  - CROHN'S DISEASE [None]
  - GASTRIC ULCER [None]
  - GASTRITIS [None]
  - OESOPHAGEAL CANDIDIASIS [None]
